FAERS Safety Report 4891096-1 (Version None)
Quarter: 2006Q1

REPORT INFORMATION
  Report Type: 
  Country: None (occurrence: None)
  Receive Date: 20060125
  Receipt Date: 20050620
  Transmission Date: 20060701
  Serious: Yes (Death, Hospitalization)
  Sender: FDA-Public Use
  Company Number: US-MERCK-0506USA02964

PATIENT
  Age: 58 Year
  Sex: Male

DRUGS (1)
  1. VIOXX [Suspect]
     Route: 048
     Dates: start: 20020401, end: 20030101

REACTIONS (15)
  - ABDOMINAL PAIN [None]
  - ACUTE MYOCARDIAL INFARCTION [None]
  - ANAEMIA VITAMIN B12 DEFICIENCY [None]
  - ANGINA PECTORIS [None]
  - ASTHENIA [None]
  - CARDIO-RESPIRATORY ARREST [None]
  - CHRONIC OBSTRUCTIVE PULMONARY DISEASE [None]
  - DIZZINESS [None]
  - DYSPNOEA [None]
  - HEPATIC CIRRHOSIS [None]
  - HEPATITIS A [None]
  - HEPATITIS B [None]
  - HYPOKALAEMIA [None]
  - RENAL DISORDER [None]
  - URETERAL DISORDER [None]
